FAERS Safety Report 23394963 (Version 1)
Quarter: 2024Q1

REPORT INFORMATION
  Report Type: Spontaneous
  Country: US (occurrence: US)
  Receive Date: 20240112
  Receipt Date: 20240112
  Transmission Date: 20240410
  Serious: No
  Sender: FDA-Public Use
  Company Number: US-002147023-NVSC2024US006672

PATIENT

DRUGS (2)
  1. IMATINIB [Suspect]
     Active Substance: IMATINIB
     Indication: Product used for unknown indication
     Dosage: 400 MG
     Route: 065
     Dates: start: 20230801
  2. IMATINIB [Suspect]
     Active Substance: IMATINIB
     Dosage: 200 MG
     Route: 065

REACTIONS (1)
  - Pain in extremity [Recovering/Resolving]
